FAERS Safety Report 4581855-7 (Version None)
Quarter: 2005Q1

REPORT INFORMATION
  Report Type: 
  Country: None (occurrence: None)
  Receive Date: 20050214
  Receipt Date: 20040319
  Transmission Date: 20050727
  Serious: No
  Sender: FDA-Public Use
  Company Number: US-GLAXOSMITHKLINE-A0504001A

PATIENT
  Age: 59 Year
  Sex: Male
  Weight: 109.1 kg

DRUGS (11)
  1. LAMICTAL [Suspect]
     Route: 048
     Dates: start: 19990701
  2. CLONAZEPAM [Concomitant]
     Route: 065
  3. VERAPAMIL [Concomitant]
     Dosage: 240MG TWICE PER DAY
     Route: 065
  4. ASPIRIN [Concomitant]
     Dosage: 81MG PER DAY
     Route: 065
  5. GLUCOVANCE [Concomitant]
  6. LIPITOR [Concomitant]
     Dosage: 20MG PER DAY
     Route: 065
  7. PREVACID [Concomitant]
     Dosage: 30MG PER DAY
     Route: 065
  8. NASACORT [Concomitant]
  9. CLARINEX [Concomitant]
     Dosage: 5MG PER DAY
     Route: 065
  10. VIAGRA [Concomitant]
     Dosage: 100MG AS REQUIRED
     Route: 065
  11. PERPHENAZINE [Concomitant]

REACTIONS (3)
  - DYSTONIA [None]
  - SEDATION [None]
  - TRISMUS [None]
